FAERS Safety Report 4850782-X (Version None)
Quarter: 2005Q4

REPORT INFORMATION
  Report Type: 
  Country: None (occurrence: None)
  Receive Date: 20051212
  Receipt Date: 20051206
  Transmission Date: 20060501
  Serious: Yes (Hospitalization)
  Sender: FDA-Public Use
  Company Number: 2005CG02011

PATIENT
  Age: 67 Year
  Sex: Male

DRUGS (5)
  1. MOPRAL [Suspect]
     Route: 048
  2. ASPIRIN [Suspect]
     Indication: ARTHRALGIA
     Route: 048
     Dates: start: 20030908, end: 20030910
  3. FRAGMIN [Suspect]
     Indication: ANGIOPATHY
     Route: 058
  4. ZESTRIL [Concomitant]
     Indication: ESSENTIAL HYPERTENSION
     Route: 048
  5. ATARAX [Concomitant]
     Route: 048

REACTIONS (1)
  - MELAENA [None]
